FAERS Safety Report 5678099-4 (Version None)
Quarter: 2008Q1

REPORT INFORMATION
  Report Type: 
  Country: None (occurrence: None)
  Receive Date: 20080319
  Receipt Date: 20080128
  Transmission Date: 20080703
  Serious: Yes (Other)
  Sender: FDA-Public Use
  Company Number: US022743

PATIENT
  Age: 72 Year
  Sex: Male

DRUGS (2)
  1. MODAFINIL [Suspect]
     Dosage: ORAL
     Route: 048
  2. DEXAMPHETAMINE [Suspect]
     Indication: CEREBROVASCULAR ACCIDENT

REACTIONS (1)
  - CONVULSION [None]
